FAERS Safety Report 22200378 (Version 2)
Quarter: 2023Q2

REPORT INFORMATION
  Report Type: Spontaneous
  Country: US (occurrence: US)
  Receive Date: 20230412
  Receipt Date: 20230531
  Transmission Date: 20230721
  Serious: Yes (Other)
  Sender: FDA-Public Use
  Company Number: US-BRISTOL-MYERS SQUIBB COMPANY-2023-048671

PATIENT
  Age: 69 Year
  Sex: Female

DRUGS (1)
  1. REVLIMID [Suspect]
     Active Substance: LENALIDOMIDE
     Indication: Plasma cell myeloma
     Dosage: TAKE 1 CAPSULE BY MOUTH EVERY NIGHT AT BEDTIME FOR 14 DAYS WITH 7 DAYS OFF. REPEAT EVERY 21 DAYS.
     Route: 048
     Dates: start: 20230311

REACTIONS (3)
  - Muscular weakness [Not Recovered/Not Resolved]
  - Off label use [Unknown]
  - Vitamin D decreased [Recovering/Resolving]
